FAERS Safety Report 7412617-0 (Version None)
Quarter: 2011Q2

REPORT INFORMATION
  Report Type: 
  Country: None (occurrence: None)
  Receive Date: 20110413
  Receipt Date: 20110411
  Transmission Date: 20111010
  Serious: Yes (Hospitalization)
  Sender: FDA-Public Use
  Company Number: A0922422A

PATIENT
  Age: 62 Year
  Sex: Female
  Weight: 76.4 kg

DRUGS (2)
  1. ALLI [Suspect]
     Indication: WEIGHT LOSS DIET
     Route: 048
     Dates: start: 20090101, end: 20090601
  2. HYDROCHLOROTHIAZIDE [Concomitant]
     Indication: BLOOD PRESSURE

REACTIONS (6)
  - HYPERSENSITIVITY [None]
  - INCREASED TENDENCY TO BRUISE [None]
  - BLOOD POTASSIUM DECREASED [None]
  - BIOPSY BONE MARROW [None]
  - PLATELET COUNT DECREASED [None]
  - ANAEMIA [None]
